FAERS Safety Report 6532825-0 (Version None)
Quarter: 2010Q1

REPORT INFORMATION
  Report Type: 
  Country: None (occurrence: None)
  Receive Date: 20100111
  Receipt Date: 20091229
  Transmission Date: 20100710
  Serious: Yes (Other)
  Sender: FDA-Public Use
  Company Number: US-ELI_LILLY_AND_COMPANY-US200912006259

PATIENT
  Age: 45 Year
  Sex: Female

DRUGS (1)
  1. CYMBALTA [Suspect]
     Indication: DEPRESSION
     Dosage: 120 MG, 2/D
     Dates: start: 20080101

REACTIONS (6)
  - BACK INJURY [None]
  - FACET JOINT SYNDROME [None]
  - FALL [None]
  - LARGE INTESTINE PERFORATION [None]
  - OVERDOSE [None]
  - RIB FRACTURE [None]
